FAERS Safety Report 6422198-6 (Version None)
Quarter: 2009Q4

REPORT INFORMATION
  Report Type: 
  Country: None (occurrence: None)
  Receive Date: 20091030
  Receipt Date: 20091026
  Transmission Date: 20100525
  Serious: Yes (Other)
  Sender: FDA-Public Use
  Company Number: PHHY2009GB46856

PATIENT
  Age: 16 Year
  Sex: Male

DRUGS (1)
  1. RITALIN [Suspect]
     Route: 048

REACTIONS (1)
  - FACIAL PALSY [None]
